FAERS Safety Report 11291837 (Version 1)
Quarter: 2015Q3

REPORT INFORMATION
  Report Type: Spontaneous
  Country: GB (occurrence: GB)
  Receive Date: 20150722
  Receipt Date: 20150722
  Transmission Date: 20151125
  Serious: Yes (Other)
  Sender: FDA-Public Use
  Company Number: GB-WATSON-2015-15077

PATIENT
  Age: 55 Year
  Sex: Male

DRUGS (2)
  1. LAMOTRIGINE (UNKNOWN) [Suspect]
     Active Substance: LAMOTRIGINE
     Indication: ANXIETY
     Dosage: 200 MG, UNKNOWN
     Route: 048
     Dates: start: 20150301, end: 20150601
  2. RAMIPRIL. [Concomitant]
     Active Substance: RAMIPRIL
     Indication: PRODUCT USED FOR UNKNOWN INDICATION
     Dosage: UNK
     Route: 065

REACTIONS (1)
  - Aggression [Recovering/Resolving]
